FAERS Safety Report 10144850 (Version 1)
Quarter: 2014Q2

REPORT INFORMATION
  Report Type: Spontaneous
  Country: US (occurrence: US)
  Receive Date: 20140430
  Receipt Date: 20140430
  Transmission Date: 20141212
  Serious: Yes (Hospitalization)
  Sender: FDA-Public Use
  Company Number: US-SA-2014SA013452

PATIENT
  Age: 65 Year
  Sex: Male
  Weight: 94.8 kg

DRUGS (5)
  1. ENOXAPARIN SODIUM [Suspect]
     Indication: DEEP VEIN THROMBOSIS
     Route: 065
     Dates: start: 20130812
  2. ALL OTHER THERAPEUTIC PRODUCTS [Suspect]
     Indication: NEOPLASM
     Dosage: EXACT DOSE OF THE INFUSION WAS 1900 MG
     Route: 042
     Dates: start: 20130708, end: 20130708
  3. ALL OTHER THERAPEUTIC PRODUCTS [Suspect]
     Indication: NEOPLASM
     Dosage: EXACT DOSE OF THE INFUSION WAS 1900 MG
     Route: 042
     Dates: start: 20130722, end: 20130722
  4. NOVOLOG [Concomitant]
     Dates: start: 20130716
  5. LANTUS [Concomitant]
     Dates: start: 20130716

REACTIONS (1)
  - Respiratory tract haemorrhage [Recovered/Resolved]
